FAERS Safety Report 7284074-9 (Version None)
Quarter: 2011Q1

REPORT INFORMATION
  Report Type: 
  Country: None (occurrence: None)
  Receive Date: 20110209
  Receipt Date: 20110202
  Transmission Date: 20110831
  Serious: Yes (Other)
  Sender: FDA-Public Use
  Company Number: US-US-EMD SERONO, INC.-231347J09USA

PATIENT
  Sex: Female

DRUGS (8)
  1. FISH OIL [Concomitant]
     Route: 065
  2. CYMBALTA [Concomitant]
     Indication: NEURALGIA
     Route: 065
     Dates: start: 20090101
  3. REQUIP [Concomitant]
     Indication: MUSCLE SPASMS
     Route: 065
     Dates: start: 20090406
  4. REBIF [Suspect]
     Indication: MULTIPLE SCLEROSIS
     Route: 058
     Dates: start: 20051101, end: 20110101
  5. UNSPECIFIED PAIN MEDICATIONS [Concomitant]
     Indication: PAIN
     Route: 065
  6. LISINOPRIL [Concomitant]
     Indication: HYPERTENSION
     Route: 065
  7. ADVIL [Concomitant]
     Indication: PREMEDICATION
     Route: 065
  8. CALCIUM 600 WITH VITAMIN D [Concomitant]
     Route: 065

REACTIONS (3)
  - DIABETES MELLITUS [None]
  - BENIGN NEOPLASM OF THYROID GLAND [None]
  - HEPATIC STEATOSIS [None]
